FAERS Safety Report 10996781 (Version 1)
Quarter: 2015Q2

REPORT INFORMATION
  Report Type: Spontaneous
  Country: US (occurrence: None)
  Receive Date: 20150407
  Receipt Date: 20150407
  Transmission Date: 20150821
  Serious: No
  Sender: FDA-Public Use
  Company Number: None

PATIENT
  Age: 23 Year
  Sex: Male
  Weight: 83.92 kg

DRUGS (1)
  1. AMPHETAMINE-DEXTROAMPHETAMINE TA 15 MG MALLINCKRODT [Suspect]
     Active Substance: AMPHETAMINE SULFATE\DEXTROAMPHETAMINE
     Indication: ATTENTION DEFICIT/HYPERACTIVITY DISORDER
     Dosage: 1 PILL THREE TIMES DAILY TAKEN BY MOUTH
     Route: 048
     Dates: start: 20150403, end: 20150406

REACTIONS (11)
  - Headache [None]
  - Pain in jaw [None]
  - Abdominal pain upper [None]
  - Fatigue [None]
  - Product quality issue [None]
  - Drug ineffective [None]
  - Feeling jittery [None]
  - Product substitution issue [None]
  - Insomnia [None]
  - Frustration [None]
  - Lymphadenopathy [None]

NARRATIVE: CASE EVENT DATE: 20150403
